FAERS Safety Report 7702269-4 (Version None)
Quarter: 2011Q3

REPORT INFORMATION
  Report Type: 
  Country: None (occurrence: None)
  Receive Date: 20110822
  Receipt Date: 20110815
  Transmission Date: 20111222
  Serious: Yes (Other)
  Sender: FDA-Public Use
  Company Number: US-ABBOTT-11P-163-0846222-00

PATIENT
  Sex: Male

DRUGS (4)
  1. UNSPECIFIED OTHER MEDICATIONS [Concomitant]
     Indication: PRODUCT USED FOR UNKNOWN INDICATION
     Dosage: NOT REPORTED.
  2. HUMIRA [Suspect]
     Indication: PSORIASIS
     Route: 058
     Dates: start: 20100101, end: 20110701
  3. HUMIRA [Suspect]
     Indication: RHEUMATOID ARTHRITIS
  4. UNKNOWN BLOOD PRESSURE MEDICATION [Concomitant]
     Indication: HYPERTENSION

REACTIONS (10)
  - SCLERAL DISORDER [None]
  - DYSPNOEA [None]
  - CONJUNCTIVAL ULCER [None]
  - EYE PAIN [None]
  - ASTHMA [None]
  - FOREIGN BODY SENSATION IN EYES [None]
  - PSORIASIS [None]
  - OCULAR HYPERAEMIA [None]
  - DRUG INTOLERANCE [None]
  - EAR INFECTION [None]
